FAERS Safety Report 11831464 (Version 3)
Quarter: 2016Q1

REPORT INFORMATION
  Report Type: Spontaneous
  Country: CO (occurrence: CO)
  Receive Date: 20151214
  Receipt Date: 20160308
  Transmission Date: 20160525
  Serious: Yes (Other)
  Sender: FDA-Public Use
  Company Number: CO-AMGEN-COLSP2015133018

PATIENT
  Age: 76 Year
  Sex: Female

DRUGS (1)
  1. ENBREL [Suspect]
     Active Substance: ETANERCEPT
     Indication: RHEUMATOID ARTHRITIS
     Dosage: 50 MG, WEEKLY
     Route: 058
     Dates: start: 2012, end: 201509

REACTIONS (11)
  - Hyperhidrosis [Recovering/Resolving]
  - Feeling abnormal [Unknown]
  - Headache [Recovering/Resolving]
  - Erysipelas [Recovering/Resolving]
  - Fall [Recovering/Resolving]
  - Musculoskeletal pain [Not Recovered/Not Resolved]
  - Device loosening [Not Recovered/Not Resolved]
  - Upper limb fracture [Recovering/Resolving]
  - Discomfort [Recovering/Resolving]
  - Arthralgia [Not Recovered/Not Resolved]
  - Pain in extremity [Not Recovered/Not Resolved]

NARRATIVE: CASE EVENT DATE: 201508
